FAERS Safety Report 6692673-8 (Version None)
Quarter: 2010Q2

REPORT INFORMATION
  Report Type: 
  Country: None (occurrence: None)
  Receive Date: 20100422
  Receipt Date: 20100414
  Transmission Date: 20101027
  Serious: Yes (Hospitalization)
  Sender: FDA-Public Use
  Company Number: JP-ASTRAZENECA-2010SE13638

PATIENT
  Sex: Male
  Weight: 48 kg

DRUGS (4)
  1. CANDESARTAN CILEXETIL [Suspect]
     Indication: HYPERTENSION
     Route: 048
     Dates: end: 20100305
  2. NORVASC [Concomitant]
     Indication: HYPERTENSION
     Route: 048
  3. LOXONIN [Concomitant]
     Indication: BACK PAIN
     Route: 065
  4. RINLAXER [Concomitant]
     Indication: MYALGIA
     Route: 048

REACTIONS (1)
  - HYPOGLYCAEMIA [None]
